FAERS Safety Report 10415108 (Version 1)
Quarter: 2014Q2

REPORT INFORMATION
  Report Type: Spontaneous
  Country: US (occurrence: None)
  Receive Date: 20140514
  Receipt Date: 20140514
  Transmission Date: 20141212
  Serious: Yes (Hospitalization, Other)
  Sender: FDA-Public Use
  Company Number: 103577U

PATIENT
  Sex: Female
  Weight: 78.9 kg

DRUGS (6)
  1. CIMZIA [Suspect]
     Indication: PSORIATIC ARTHROPATHY
     Dosage: 400MG 1X/MONTH, NO OF DOSES 8
     Dates: end: 20131204
  2. VOLTAREN [Concomitant]
  3. SIMVASTATIN [Concomitant]
  4. COSOPT [Concomitant]
  5. TRAVATAN [Concomitant]
  6. METHOTREXATE [Concomitant]

REACTIONS (3)
  - Upper limb fracture [None]
  - Accident [None]
  - Pain [None]
